FAERS Safety Report 23370769 (Version 2)
Quarter: 2024Q2

REPORT INFORMATION
  Report Type: Spontaneous
  Country: US (occurrence: US)
  Receive Date: 20240105
  Receipt Date: 20240419
  Transmission Date: 20240716
  Serious: No
  Sender: FDA-Public Use
  Company Number: US-SA-SAC20240101000776

PATIENT
  Age: 52 Year
  Sex: Female

DRUGS (1)
  1. DUPIXENT [Suspect]
     Active Substance: DUPILUMAB
     Indication: Dermatitis
     Dosage: 300 MG, QOW
     Route: 058

REACTIONS (8)
  - Appetite disorder [Not Recovered/Not Resolved]
  - Product use in unapproved indication [Unknown]
  - Dry eye [Unknown]
  - Arthralgia [Unknown]
  - Cheilitis [Unknown]
  - Eye irritation [Unknown]
  - Skin irritation [Unknown]
  - Drug effective for unapproved indication [Unknown]
